FAERS Safety Report 8380421-5 (Version None)
Quarter: 2012Q2

REPORT INFORMATION
  Report Type: 
  Country: None (occurrence: None)
  Receive Date: 20120523
  Receipt Date: 20120521
  Transmission Date: 20120825
  Serious: Yes (Hospitalization)
  Sender: FDA-Public Use
  Company Number: US-GLAXOSMITHKLINE-A0933722A

PATIENT
  Age: 82 Year
  Sex: Female

DRUGS (1)
  1. AVANDIA [Suspect]
     Indication: DIABETES MELLITUS
     Route: 048
     Dates: start: 20000720, end: 20090523

REACTIONS (6)
  - MUSCULAR WEAKNESS [None]
  - CARDIAC DISORDER [None]
  - CEREBROVASCULAR ACCIDENT [None]
  - CARDIAC MURMUR [None]
  - TRANSIENT ISCHAEMIC ATTACK [None]
  - CHEST PAIN [None]
